FAERS Safety Report 22027992 (Version 1)
Quarter: 2023Q1

REPORT INFORMATION
  Report Type: Spontaneous
  Country: US (occurrence: None)
  Receive Date: 20230220
  Receipt Date: 20230220
  Transmission Date: 20230417
  Serious: Yes (Other)
  Sender: FDA-Public Use
  Company Number: None

PATIENT
  Age: 46 Year
  Sex: Male
  Weight: 77.7 kg

DRUGS (3)
  1. EPCLUSA [Suspect]
     Active Substance: SOFOSBUVIR\VELPATASVIR
     Indication: Acute hepatitis C
     Dosage: FREQUENCY : DAILY;?
     Route: 048
     Dates: start: 20230123, end: 20230203
  2. PEMETREXED [Concomitant]
     Active Substance: PEMETREXED
     Dates: start: 20220412
  3. PEMBROLIZUMAB [Concomitant]
     Active Substance: PEMBROLIZUMAB
     Dates: start: 20220412

REACTIONS (3)
  - Rash erythematous [None]
  - Rash papular [None]
  - Pruritus [None]

NARRATIVE: CASE EVENT DATE: 20230201
